FAERS Safety Report 5499093-2 (Version None)
Quarter: 2007Q4

REPORT INFORMATION
  Report Type: 
  Country: None (occurrence: None)
  Receive Date: 20071026
  Receipt Date: 20070530
  Transmission Date: 20080405
  Serious: No
  Sender: FDA-Public Use
  Company Number: A0653475A

PATIENT
  Age: 66 Year
  Sex: Female

DRUGS (9)
  1. ADVAIR DISKUS 100/50 [Suspect]
     Indication: ASTHMA
     Dosage: 1PUFF PER DAY
     Route: 055
     Dates: start: 20050101
  2. ASTELIN [Concomitant]
  3. ALLEGRA [Concomitant]
  4. SYNTHROID [Concomitant]
  5. PAXIL [Concomitant]
  6. PRILOSEC [Concomitant]
  7. CALCIUM [Concomitant]
  8. GLUCOSAMINE [Concomitant]
  9. ALLERGY INJECTIONS [Concomitant]

REACTIONS (1)
  - LARYNGITIS [None]
